FAERS Safety Report 5651175-8 (Version None)
Quarter: 2008Q1

REPORT INFORMATION
  Report Type: 
  Country: None (occurrence: None)
  Receive Date: 20080305
  Receipt Date: 20071101
  Transmission Date: 20080703
  Serious: Yes (Other)
  Sender: FDA-Public Use
  Company Number: ES-BRISTOL-MYERS SQUIBB COMPANY-14098792

PATIENT
  Sex: Male

DRUGS (3)
  1. STAVUDINE [Suspect]
     Indication: HIV INFECTION
     Dates: start: 20001015
  2. LAMIVUDINE [Suspect]
     Indication: HIV INFECTION
     Dates: start: 20001015
  3. NEVIRAPINE [Suspect]
     Indication: HIV INFECTION
     Dates: start: 20001015

REACTIONS (2)
  - DRUG INTOLERANCE [None]
  - LIPODYSTROPHY ACQUIRED [None]
